FAERS Safety Report 7940659-5 (Version None)
Quarter: 2011Q4

REPORT INFORMATION
  Report Type: 
  Country: None (occurrence: None)
  Receive Date: 20111128
  Receipt Date: 20111118
  Transmission Date: 20120403
  Serious: Yes (Other)
  Sender: FDA-Public Use
  Company Number: US-JNJFOC-20111109085

PATIENT
  Sex: Male

DRUGS (3)
  1. DOXIL [Suspect]
     Indication: LIPOSARCOMA
     Route: 042
     Dates: start: 20101201, end: 20110601
  2. DOXIL [Suspect]
     Route: 042
     Dates: start: 20070101
  3. AFINITOR [Suspect]
     Indication: LIPOSARCOMA
     Route: 065

REACTIONS (2)
  - OFF LABEL USE [None]
  - DISEASE PROGRESSION [None]
